FAERS Safety Report 8163048-X (Version None)
Quarter: 2012Q1

REPORT INFORMATION
  Report Type: 
  Country: None (occurrence: None)
  Receive Date: 20120224
  Receipt Date: 20120222
  Transmission Date: 20120608
  Serious: Yes (Other)
  Sender: FDA-Public Use
  Company Number: US-GLAXOSMITHKLINE-A0607247A

PATIENT
  Age: 75 Year
  Sex: Male
  Weight: 86.4 kg

DRUGS (6)
  1. MYLANTA [Concomitant]
  2. ACETAMINOPHEN [Concomitant]
  3. ACIPHEX [Concomitant]
  4. BISMUTH SUBSALICYLATE [Concomitant]
  5. ADVAIR DISKUS 100/50 [Suspect]
     Indication: CHRONIC OBSTRUCTIVE PULMONARY DISEASE
     Dosage: 1PUFF TWICE PER DAY
     Route: 055
     Dates: end: 20060525
  6. UNKNOWN MEDICATION [Concomitant]
     Indication: HERNIA

REACTIONS (32)
  - PRODUCT QUALITY ISSUE [None]
  - VERTIGO [None]
  - SPINAL OSTEOARTHRITIS [None]
  - SYNCOPE [None]
  - HEART RATE INCREASED [None]
  - MENTAL DISORDER [None]
  - BLOOD PRESSURE INCREASED [None]
  - DYSPNOEA [None]
  - ADVERSE EVENT [None]
  - CHEST PAIN [None]
  - SPEECH DISORDER [None]
  - PAIN IN EXTREMITY [None]
  - LUNG DISORDER [None]
  - LACRIMATION INCREASED [None]
  - CHEST X-RAY ABNORMAL [None]
  - KYPHOSIS [None]
  - HEADACHE [None]
  - EYE DISORDER [None]
  - DYSURIA [None]
  - DYSGEUSIA [None]
  - FEELING ABNORMAL [None]
  - DIZZINESS [None]
  - CHOKING SENSATION [None]
  - CEREBROVASCULAR ACCIDENT [None]
  - APHASIA [None]
  - CHOKING [None]
  - DRY MOUTH [None]
  - OROPHARYNGEAL PAIN [None]
  - VISION BLURRED [None]
  - ATRIAL THROMBOSIS [None]
  - NECK PAIN [None]
  - TOTAL LUNG CAPACITY INCREASED [None]
